FAERS Safety Report 19697891 (Version 3)
Quarter: 2021Q3

REPORT INFORMATION
  Report Type: Spontaneous
  Country: DE (occurrence: DE)
  Receive Date: 20210813
  Receipt Date: 20210915
  Transmission Date: 20211014
  Serious: Yes (Other)
  Sender: FDA-Public Use
  Company Number: DE-MYLANLABS-2021M1049354

PATIENT

DRUGS (1)
  1. ALPROSTADIL. [Suspect]
     Active Substance: ALPROSTADIL
     Indication: PAIN
     Dosage: UNK, FIRST TWO DOSES OF PROSATAVASIN ON MO AND DI THIS WEEK, QD 1 AMPOULE DAILY, PROSTAVASIN,
     Route: 065
     Dates: start: 20210201, end: 20210202

REACTIONS (6)
  - Diarrhoea [Unknown]
  - Headache [Unknown]
  - Musculoskeletal discomfort [Unknown]
  - Nausea [Unknown]
  - Intestinal haemorrhage [Recovered/Resolved]
  - Chills [Unknown]

NARRATIVE: CASE EVENT DATE: 20210203
